FAERS Safety Report 21565504 (Version 1)
Quarter: 2022Q4

REPORT INFORMATION
  Report Type: Report from Study
  Country: US (occurrence: None)
  Receive Date: 20221108
  Receipt Date: 20221108
  Transmission Date: 20230112
  Serious: Yes (Hospitalization)
  Sender: FDA-Public Use
  Company Number: US-ROCHE-2993151

PATIENT
  Age: 75 Year
  Sex: Female
  Weight: 60.4 kg

DRUGS (3)
  1. ATEZOLIZUMAB [Suspect]
     Active Substance: ATEZOLIZUMAB
     Indication: Ovarian cancer
     Dosage: OVER 1 HOUR ON DAYS 1 AND 15
     Route: 041
     Dates: start: 20210816, end: 20210913
  2. BEVACIZUMAB [Suspect]
     Active Substance: BEVACIZUMAB
     Indication: Ovarian cancer
     Dosage: 10 MG/KG IV OVER 90 MINUTES ON DAYS 1 AND 15
     Route: 042
     Dates: start: 20210816, end: 20210816
  3. DOXORUBICIN HYDROCHLORIDE [Suspect]
     Active Substance: DOXORUBICIN HYDROCHLORIDE
     Indication: Ovarian cancer
     Dosage: IV OVER 1 HOUR ON DAY 1
     Route: 042
     Dates: start: 20210816, end: 20210913

REACTIONS (3)
  - Vomiting [Recovered/Resolved]
  - Small intestinal perforation [Recovered/Resolved]
  - Small intestinal perforation [Recovered/Resolved]

NARRATIVE: CASE EVENT DATE: 20210822
